FAERS Safety Report 10307582 (Version 1)
Quarter: 2014Q3

REPORT INFORMATION
  Report Type: Spontaneous
  Country: US (occurrence: None)
  Receive Date: 20140714
  Receipt Date: 20140714
  Transmission Date: 20150326
  Serious: Yes (Other)
  Sender: FDA-Public Use
  Company Number: None

PATIENT
  Age: 26 Year
  Sex: Female
  Weight: 57.61 kg

DRUGS (2)
  1. TRANSDERM SCOP [Suspect]
     Active Substance: SCOPOLAMINE
     Indication: BALANCE DISORDER
     Dosage: 1 PATCH, EVERY 3 DAYS, APPLIED AS MEDICATED PATCH TO SKIN
  2. TRANSDERM SCOP [Suspect]
     Active Substance: SCOPOLAMINE
     Indication: INNER EAR DISORDER
     Dosage: 1 PATCH, EVERY 3 DAYS, APPLIED AS MEDICATED PATCH TO SKIN

REACTIONS (8)
  - Drug withdrawal syndrome [None]
  - Hyperhidrosis [None]
  - Migraine [None]
  - Vomiting [None]
  - Somnolence [None]
  - Feeling abnormal [None]
  - Dizziness [None]
  - Asthenia [None]

NARRATIVE: CASE EVENT DATE: 20140710
